FAERS Safety Report 6129612-4 (Version None)
Quarter: 2009Q1

REPORT INFORMATION
  Report Type: 
  Country: None (occurrence: None)
  Receive Date: 20090324
  Receipt Date: 20090319
  Transmission Date: 20090719
  Serious: Yes (Hospitalization)
  Sender: FDA-Public Use
  Company Number: PHHO2008FR14274

PATIENT
  Sex: Male
  Weight: 79 kg

DRUGS (1)
  1. TASIGNA [Suspect]
     Indication: GASTROINTESTINAL STROMAL TUMOUR
     Dosage: 800 MG DAILY
     Route: 048
     Dates: start: 20080708, end: 20081117

REACTIONS (5)
  - BLOOD CREATININE INCREASED [None]
  - CONVULSION [None]
  - EPILEPSY [None]
  - RENAL FAILURE ACUTE [None]
  - RHABDOMYOLYSIS [None]
